FAERS Safety Report 7562816-2 (Version None)
Quarter: 2011Q2

REPORT INFORMATION
  Report Type: 
  Country: None (occurrence: None)
  Receive Date: 20110622
  Receipt Date: 20110614
  Transmission Date: 20111010
  Serious: Yes (Other)
  Sender: FDA-Public Use
  Company Number: ES-ROCHE-633319

PATIENT
  Sex: Female

DRUGS (2)
  1. TRASTUZUMAB [Suspect]
     Indication: BREAST CANCER
     Dosage: THE PATIENT HAD TAKEN 4MG/KG OR 8MG/KG AS LOADING DOSE.
     Route: 042
  2. TRASTUZUMAB [Suspect]
     Dosage: DOSE REPORTED AS 279MG/3W
     Route: 042
     Dates: start: 20040119, end: 20050111

REACTIONS (1)
  - ABORTION SPONTANEOUS [None]
